FAERS Safety Report 24882568 (Version 4)
Quarter: 2025Q2

REPORT INFORMATION
  Report Type: Spontaneous
  Country: DE (occurrence: DE)
  Receive Date: 20250124
  Receipt Date: 20250522
  Transmission Date: 20250717
  Serious: Yes (Life-Threatening, Other)
  Sender: BOEHRINGER INGELHEIM
  Company Number: DE-CADRBFARM-2025333698

PATIENT
  Age: 65 Year
  Sex: Female
  Weight: 60 kg

DRUGS (6)
  1. EMPAGLIFLOZIN [Suspect]
     Active Substance: EMPAGLIFLOZIN
     Indication: Type 2 diabetes mellitus
     Dates: start: 202412, end: 20241230
  2. METHOTREXATE [Suspect]
     Active Substance: METHOTREXATE
     Indication: Rheumatoid arthritis
     Dosage: DOSAGE: 15
     Dates: start: 202409
  3. PREDNISOLONE [Suspect]
     Active Substance: PREDNISOLONE
     Indication: Rheumatoid arthritis
  4. EDOXABAN [Concomitant]
     Active Substance: EDOXABAN
     Indication: Product used for unknown indication
  5. TICAGRELOR [Concomitant]
     Active Substance: TICAGRELOR
     Indication: Product used for unknown indication
  6. Edobaxan [Concomitant]
     Indication: Product used for unknown indication
     Dosage: 1-0-0

REACTIONS (19)
  - Fournier^s gangrene [Recovered/Resolved with Sequelae]
  - Necrotising fasciitis [Recovered/Resolved with Sequelae]
  - Abscess limb [Recovered/Resolved with Sequelae]
  - Sepsis [Unknown]
  - Septic shock [Unknown]
  - Rectal abscess [Recovered/Resolved]
  - Respiratory failure [Unknown]
  - Delirium [Unknown]
  - Atrial fibrillation [Unknown]
  - Post procedural haemorrhage [Unknown]
  - Coagulation factor deficiency [Unknown]
  - Angina pectoris [Unknown]
  - Pleural effusion [Unknown]
  - Atelectasis [Unknown]
  - Electrolyte imbalance [Unknown]
  - Anaemia [Unknown]
  - Thrombocytopenia [Unknown]
  - Candida infection [Unknown]
  - Oliguria [Unknown]

NARRATIVE: CASE EVENT DATE: 20241201
